FAERS Safety Report 25928332 (Version 2)
Quarter: 2025Q4

REPORT INFORMATION
  Report Type: Spontaneous
  Country: JP (occurrence: JP)
  Receive Date: 20251016
  Receipt Date: 20251121
  Transmission Date: 20260119
  Serious: Yes (Death)
  Sender: MERCK SHARP & DOHME LLC
  Company Number: JP-009507513-2340156

PATIENT
  Age: 105 Year

DRUGS (8)
  1. LAGEVRIO [Suspect]
     Active Substance: MOLNUPIRAVIR
     Indication: COVID-19 treatment
     Route: 048
     Dates: start: 20251003, end: 20251007
  2. DIART [Concomitant]
  3. CALONAL [Concomitant]
     Active Substance: ACETAMINOPHEN
  4. MEDICON [Concomitant]
  5. TIARAMIDE [Concomitant]
     Active Substance: TIARAMIDE
  6. ONEALFA [Concomitant]
     Active Substance: ALFACALCIDOL
  7. MOVICOL [Concomitant]
     Active Substance: POLYETHYLENE GLYCOL 3350\POTASSIUM CHLORIDE\SODIUM BICARBONATE\SODIUM CHLORIDE
  8. ENTRESTO [Concomitant]
     Active Substance: SACUBITRIL\VALSARTAN

REACTIONS (1)
  - Death [Fatal]

NARRATIVE: CASE EVENT DATE: 20251008
